FAERS Safety Report 7838070-0 (Version None)
Quarter: 2011Q4

REPORT INFORMATION
  Report Type: 
  Country: None (occurrence: None)
  Receive Date: 20111024
  Receipt Date: 20110221
  Transmission Date: 20120403
  Serious: No
  Sender: FDA-Public Use
  Company Number: US-ABBOTT-11P-163-0707823-00

PATIENT
  Sex: Female
  Weight: 79.45 kg

DRUGS (1)
  1. LUPRON DEPOT [Suspect]
     Indication: UTERINE LEIOMYOMA
     Route: 050
     Dates: start: 20110114, end: 20110114

REACTIONS (4)
  - FEELING ABNORMAL [None]
  - PAIN IN EXTREMITY [None]
  - PALPITATIONS [None]
  - PAIN [None]
